FAERS Safety Report 5673660-5 (Version None)
Quarter: 2008Q2

REPORT INFORMATION
  Report Type: 
  Country: None (occurrence: None)
  Receive Date: 20080225
  Receipt Date: 20071205
  Transmission Date: 20081010
  Serious: Yes (Hospitalization)
  Sender: FDA-Public Use
  Company Number: WAES 0712USA01993

PATIENT
  Age: 72 Year
  Sex: Female
  Weight: 30.8446 kg

DRUGS (3)
  1. ZOCOR [Suspect]
     Indication: DIABETES MELLITUS
     Dosage: HS/PO
     Route: 048
     Dates: start: 20070410, end: 20070506
  2. ZOCOR [Suspect]
     Indication: HYPERLIPIDAEMIA
     Dosage: HS/PO
     Route: 048
     Dates: start: 20070410, end: 20070506
  3. LOTREL [Suspect]
     Indication: HYPERTENSION
     Dosage: 5/20 MG/DAILY/PO
     Route: 048
     Dates: start: 20070501

REACTIONS (3)
  - ASTHENIA [None]
  - BLOOD CREATINE PHOSPHOKINASE INCREASED [None]
  - MYALGIA [None]
